FAERS Safety Report 9092760 (Version 1)
Quarter: 2013Q1

REPORT INFORMATION
  Report Type: Report from Study
  Country: US (occurrence: US)
  Receive Date: 20130131
  Receipt Date: 20130131
  Transmission Date: 20140127
  Serious: Yes (Other)
  Sender: FDA-Public Use
  Company Number: US-ABBOTT-12P-163-1002862-00

PATIENT
  Age: 51 Year
  Sex: Male

DRUGS (7)
  1. HUMIRA PEN [Suspect]
     Indication: CROHN^S DISEASE
     Dates: start: 201104
  2. HUMIRA PEN [Suspect]
     Dates: end: 201209
  3. EFFEXOR [Concomitant]
     Indication: PANIC DISORDER
     Dosage: 75MG DAILY
  4. LISINOPRIL [Concomitant]
     Indication: HYPERTENSION
     Dosage: 10MG DAILY
  5. NORVASC [Concomitant]
     Indication: HYPERTENSION
     Dosage: 5MG DAILY
  6. LORAZEPAM [Concomitant]
     Indication: PANIC DISORDER
     Dosage: 1MG UP TO 3 TIMES DAILY
  7. CHOLESTYRAMINE [Concomitant]
     Indication: PRODUCT USED FOR UNKNOWN INDICATION
     Dosage: 1 PACKET DAILY

REACTIONS (4)
  - Drug ineffective [Not Recovered/Not Resolved]
  - Diarrhoea [Unknown]
  - Arthralgia [Not Recovered/Not Resolved]
  - Pruritus [Not Recovered/Not Resolved]
